FAERS Safety Report 7036874-8 (Version None)
Quarter: 2010Q4

REPORT INFORMATION
  Report Type: 
  Country: None (occurrence: None)
  Receive Date: 20101011
  Receipt Date: 20101001
  Transmission Date: 20110411
  Serious: Yes (Hospitalization)
  Sender: FDA-Public Use
  Company Number: PHHO2010DE13218

PATIENT
  Sex: Female
  Weight: 52 kg

DRUGS (4)
  1. CERTICAN [Suspect]
     Indication: RENAL TRANSPLANT
     Dosage: 1 MG, BID
     Route: 048
     Dates: start: 20091104
  2. MYFORTIC [Suspect]
     Indication: RENAL TRANSPLANT
     Dosage: 360 MG, BID
     Route: 048
     Dates: start: 20090813
  3. SANDIMMUNE [Concomitant]
     Indication: RENAL TRANSPLANT
     Dosage: UNK
     Dates: start: 20090813, end: 20091111
  4. URBASON [Suspect]
     Indication: RENAL TRANSPLANT
     Dosage: 24 MG / DAY
     Route: 048
     Dates: start: 20090813

REACTIONS (2)
  - BACTERIAL INFECTION [None]
  - COLITIS [None]
